FAERS Safety Report 18131105 (Version 5)
Quarter: 2020Q4

REPORT INFORMATION
  Report Type: Report from Study
  Country: FR (occurrence: FR)
  Receive Date: 20200810
  Receipt Date: 20201030
  Transmission Date: 20210113
  Serious: Yes (Death, Life-Threatening, Hospitalization, Other)
  Sender: FDA-Public Use
  Company Number: FR-MYLANLABS-2020M1069794

PATIENT
  Age: 78 Year
  Sex: Male
  Weight: 70 kg

DRUGS (17)
  1. FOLIC ACID. [Concomitant]
     Active Substance: FOLIC ACID
     Dosage: UNK
     Dates: start: 20191113
  2. CYANOCOBALAMIN. [Concomitant]
     Active Substance: CYANOCOBALAMIN
     Dosage: UNK
     Dates: start: 20191113
  3. SULFAMETHOXAZOLE W/TRIMETHOPRIM [Concomitant]
     Active Substance: SULFAMETHOXAZOLE\TRIMETHOPRIM
     Indication: PRODUCT USED FOR UNKNOWN INDICATION
     Dosage: UNK
     Route: 065
     Dates: start: 20200224, end: 20200224
  4. PROSTIGMIN                         /00045902/ [Concomitant]
     Indication: NECROTISING MYOSITIS
     Dosage: UNK
     Route: 065
     Dates: start: 20200201, end: 20200301
  5. SODIUM CHLORIDE. [Concomitant]
     Active Substance: SODIUM CHLORIDE
     Indication: DRY EYE
     Dosage: UNK
     Route: 065
     Dates: start: 20200117
  6. CELLCEPT [Concomitant]
     Active Substance: MYCOPHENOLATE MOFETIL\MYCOPHENOLATE MOFETIL HYDROCHLORIDE
     Indication: NECROTISING MYOSITIS
     Dosage: UNK
     Route: 065
     Dates: start: 20200309
  7. AMIKLIN                            /00391001/ [Concomitant]
     Active Substance: AMIKACIN SULFATE
     Indication: PROPHYLAXIS
     Dosage: UNK
     Route: 065
     Dates: start: 20200313
  8. NOREPINEPHRINE. [Concomitant]
     Active Substance: NOREPINEPHRINE
     Dosage: UNK
     Dates: start: 20200313, end: 20200313
  9. SOLU-MEDROL [Concomitant]
     Active Substance: METHYLPREDNISOLONE SODIUM SUCCINATE
     Indication: NECROTISING MYOSITIS
     Dosage: UNK
     Route: 065
     Dates: start: 20200201
  10. MYCAMINE [Concomitant]
     Active Substance: MICAFUNGIN SODIUM
     Indication: PROPHYLAXIS
     Dosage: UNK
     Dates: start: 20200313
  11. ZYVOXID [Concomitant]
     Active Substance: LINEZOLID
     Indication: PROPHYLAXIS
     Dosage: UNK
     Route: 065
     Dates: start: 20200313
  12. PEMETREXED. [Suspect]
     Active Substance: PEMETREXED
     Indication: NON-SMALL CELL LUNG CANCER
     Dosage: 500 MILLIGRAM/SQ. METER, Q3W
     Route: 042
     Dates: start: 20191120, end: 20200122
  13. PEMBROLIZUMAB. [Suspect]
     Active Substance: PEMBROLIZUMAB
     Indication: NON-SMALL CELL LUNG CANCER
     Dosage: 200 MILLIGRAM, Q3W
     Route: 042
     Dates: start: 20191120, end: 20200122
  14. MESTINON [Concomitant]
     Active Substance: PYRIDOSTIGMINE BROMIDE
     Indication: NECROTISING MYOSITIS
     Dosage: UNK
     Route: 065
     Dates: start: 20200301
  15. CARBOPLATIN. [Suspect]
     Active Substance: CARBOPLATIN
     Indication: NON-SMALL CELL LUNG CANCER
     Dosage: 440 MILLIGRAM, Q3W
     Route: 042
     Dates: start: 20191120, end: 20200122
  16. TAZOCILLINE [Concomitant]
     Active Substance: PIPERACILLIN SODIUM\TAZOBACTAM SODIUM
     Indication: PROPHYLAXIS
     Dosage: UNK
     Route: 065
     Dates: start: 20200313
  17. COTRIMOXAZOLE [Concomitant]
     Active Substance: SULFAMETHOXAZOLE\TRIMETHOPRIM
     Indication: PROPHYLAXIS
     Dosage: UNK
     Route: 065
     Dates: start: 20200224, end: 20200228

REACTIONS (11)
  - Serratia infection [Fatal]
  - Dyspnoea [Unknown]
  - Respiratory distress [Fatal]
  - Shock [Fatal]
  - Blood creatine phosphokinase abnormal [Unknown]
  - Alanine aminotransferase abnormal [Unknown]
  - Necrotising myositis [Fatal]
  - Respiratory failure [Unknown]
  - Aspartate aminotransferase abnormal [Unknown]
  - Lung disorder [Fatal]
  - Alpha haemolytic streptococcal infection [Fatal]

NARRATIVE: CASE EVENT DATE: 20200121
